FAERS Safety Report 6141664-4 (Version None)
Quarter: 2009Q1

REPORT INFORMATION
  Report Type: 
  Country: None (occurrence: None)
  Receive Date: 20090331
  Receipt Date: 20090331
  Transmission Date: 20090719
  Serious: Yes (Life-Threatening)
  Sender: FDA-Public Use
  Company Number: None

PATIENT
  Age: 15 Year
  Sex: Female
  Weight: 56.6996 kg

DRUGS (1)
  1. PENICILLIN G POTASSIUM [Suspect]
     Indication: PHARYNGITIS STREPTOCOCCAL
     Dates: start: 19960301, end: 19960302

REACTIONS (8)
  - ALOPECIA [None]
  - BLISTER [None]
  - NAUSEA [None]
  - ONYCHOMADESIS [None]
  - RASH GENERALISED [None]
  - RASH MACULO-PAPULAR [None]
  - SKIN EXFOLIATION [None]
  - VOMITING [None]
